FAERS Safety Report 13787200 (Version 1)
Quarter: 2017Q3

REPORT INFORMATION
  Report Type: Spontaneous
  Country: US (occurrence: US)
  Receive Date: 20170725
  Receipt Date: 20170725
  Transmission Date: 20171127
  Serious: No
  Sender: FDA-Public Use
  Company Number: US-UNITED THERAPEUTICS-UNT-2016-019180

PATIENT
  Age: 74 Year
  Sex: Female
  Weight: 52.15 kg

DRUGS (3)
  1. TYVASO [Suspect]
     Active Substance: TREPROSTINIL
     Indication: PULMONARY HYPERTENSION
     Dosage: 18 - 54 MICROGRAMS, QID
     Dates: start: 20161206
  2. TYVASO [Suspect]
     Active Substance: TREPROSTINIL
     Dosage: UNK
  3. TYVASO [Suspect]
     Active Substance: TREPROSTINIL
     Dosage: 36 ?G, QID

REACTIONS (7)
  - Headache [Unknown]
  - Dyspnoea [Unknown]
  - Peripheral swelling [Unknown]
  - Wheezing [Unknown]
  - Cough [Unknown]
  - Oedema [Unknown]
  - Abdominal distension [Unknown]

NARRATIVE: CASE EVENT DATE: 201612
